FAERS Safety Report 19004306 (Version 1)
Quarter: 2021Q1

REPORT INFORMATION
  Report Type: Spontaneous
  Country: US (occurrence: US)
  Receive Date: 20210312
  Receipt Date: 20210312
  Transmission Date: 20210420
  Serious: Yes (Life-Threatening, Other)
  Sender: FDA-Public Use
  Company Number: NVSC2021US046312

PATIENT

DRUGS (1)
  1. GLEEVEC [Suspect]
     Active Substance: IMATINIB MESYLATE
     Indication: GASTROINTESTINAL STROMAL TUMOUR
     Dosage: UNK, (37.5 IS OF SUTENT)
     Route: 065

REACTIONS (4)
  - Diabetes mellitus [Unknown]
  - Coma [Unknown]
  - Feeling abnormal [Unknown]
  - Drug hypersensitivity [Unknown]
